FAERS Safety Report 7739472-3 (Version None)
Quarter: 2011Q3

REPORT INFORMATION
  Report Type: 
  Country: None (occurrence: None)
  Receive Date: 20110909
  Receipt Date: 20110830
  Transmission Date: 20111222
  Serious: Yes (Hospitalization)
  Sender: FDA-Public Use
  Company Number: CN-JNJFOC-20110813516

PATIENT
  Age: 49 Year
  Sex: Female

DRUGS (2)
  1. INFLIXIMAB, RECOMBINANT [Suspect]
     Indication: COLITIS ULCERATIVE
     Dosage: AT 0, 2 AND 6 WEEKS
     Route: 042
  2. PREDNISONE [Suspect]
     Indication: COLITIS ULCERATIVE
     Route: 065

REACTIONS (1)
  - CRYPTOCOCCOSIS [None]
